FAERS Safety Report 7298046-1 (Version None)
Quarter: 2011Q1

REPORT INFORMATION
  Report Type: 
  Country: None (occurrence: None)
  Receive Date: 20110217
  Receipt Date: 20110215
  Transmission Date: 20110831
  Serious: No
  Sender: FDA-Public Use
  Company Number: US-PFIZER INC-2011010287

PATIENT
  Sex: Female
  Weight: 81.6 kg

DRUGS (4)
  1. ATENOLOL [Concomitant]
     Indication: HYPERTENSION
     Dosage: 25 MG, 1X/DAY
  2. VITAMIN D [Concomitant]
     Dosage: UNK
  3. POTASSIUM [Concomitant]
     Indication: MINERAL SUPPLEMENTATION
     Dosage: UNK
  4. PRISTIQ [Suspect]
     Indication: DEPRESSION
     Dosage: 50MG DAILY

REACTIONS (1)
  - DEPRESSION [None]
